FAERS Safety Report 19239799 (Version 2)
Quarter: 2021Q2

REPORT INFORMATION
  Report Type: Other
  Country: US (occurrence: US)
  Receive Date: 20210511
  Receipt Date: 20210609
  Transmission Date: 20210717
  Serious: No
  Sender: FDA-Public Use
  Company Number: US-NEUROCRINE BIOSCIENCES INC.-2021NBI02118

PATIENT

DRUGS (1)
  1. INGREZZA [Suspect]
     Active Substance: VALBENAZINE
     Indication: TARDIVE DYSKINESIA
     Dosage: 80 MILLIGRAM, QD
     Route: 048
     Dates: start: 20181129, end: 20210524

REACTIONS (6)
  - Balance disorder [Unknown]
  - Somnolence [Unknown]
  - Insomnia [Unknown]
  - Vision blurred [Unknown]
  - Therapeutic product effect decreased [Unknown]
  - Mobility decreased [Unknown]
